FAERS Safety Report 17528605 (Version 1)
Quarter: 2020Q1

REPORT INFORMATION
  Report Type: Spontaneous
  Country: LT (occurrence: LT)
  Receive Date: 20200311
  Receipt Date: 20200311
  Transmission Date: 20200409
  Serious: Yes (Other)
  Sender: FDA-Public Use
  Company Number: LT-TEVA-2020-LT-1199960

PATIENT
  Age: 7 Decade
  Sex: Female

DRUGS (1)
  1. FINASTERIDE TEVA [Suspect]
     Active Substance: FINASTERIDE
     Route: 065

REACTIONS (11)
  - Fatigue [Recovered/Resolved]
  - Condition aggravated [Unknown]
  - Product packaging confusion [Unknown]
  - Swelling face [Recovered/Resolved]
  - Cardiac failure [Not Recovered/Not Resolved]
  - Swelling of eyelid [Recovered/Resolved]
  - Product dispensing error [Unknown]
  - Dyspnoea [Recovered/Resolved]
  - Atrial fibrillation [Not Recovered/Not Resolved]
  - Body temperature increased [Recovered/Resolved]
  - Product use issue [Unknown]
